FAERS Safety Report 23392675 (Version 1)
Quarter: 2024Q1

REPORT INFORMATION
  Report Type: Spontaneous
  Country: US (occurrence: US)
  Receive Date: 20240111
  Receipt Date: 20240111
  Transmission Date: 20240410
  Serious: No
  Sender: FDA-Public Use
  Company Number: US-REGENERON PHARMACEUTICALS, INC.-2023-090095

PATIENT
  Sex: Female

DRUGS (6)
  1. EYLEA [Suspect]
     Active Substance: AFLIBERCEPT
     Indication: Retinal vein occlusion
     Dosage: 2 MG, EVERY 6 WEEKS, INTO RIGHT EYE (FORMULATION: PFS GERRESHEIMER)
     Dates: start: 20210126
  2. EYLEA [Suspect]
     Active Substance: AFLIBERCEPT
     Indication: Macular oedema
     Dosage: 2 MG, EVERY 9 WEEKS, INTO RIGHT EYE (FORMULATION: PFS GERRESHEIMER)
     Dates: start: 20210608
  3. EYLEA [Suspect]
     Active Substance: AFLIBERCEPT
     Dosage: 2 MG, EVERY 10 WEEKS, INTO RIGHT EYE (FORMULATION: PFS GERRESHEIMER)
     Dates: start: 20210810
  4. EYLEA [Suspect]
     Active Substance: AFLIBERCEPT
     Dosage: 2 MG, EVERY 10-12 WEEKS WEEKS, INTO RIGHT EYE (FORMULATION: PFS GERRESHEIMER)
     Dates: start: 20220726
  5. EYLEA [Suspect]
     Active Substance: AFLIBERCEPT
     Dosage: 2 MG, EVERY 12 WEEKS WEEKS, INTO RIGHT EYE (FORMULATION: PFS GERRESHEIMER)
     Dates: end: 20230425
  6. EYLEA [Suspect]
     Active Substance: AFLIBERCEPT
     Dosage: 2 MG, EVERY 12 WEEKS WEEKS, INTO RIGHT EYE (FORMULATION: PFS GERRESHEIMER)
     Dates: start: 2023

REACTIONS (1)
  - Product dose omission issue [Recovered/Resolved]

NARRATIVE: CASE EVENT DATE: 20230718
